FAERS Safety Report 5017704-2 (Version None)
Quarter: 2006Q2

REPORT INFORMATION
  Report Type: 
  Country: None (occurrence: None)
  Receive Date: 20060525
  Receipt Date: 20060515
  Transmission Date: 20061013
  Serious: Yes (Disabling, Other)
  Sender: FDA-Public Use
  Company Number: 2006US001025

PATIENT
  Age: 44 Year
  Sex: Male

DRUGS (6)
  1. AMBISOME [Suspect]
     Indication: MENINGITIS FUNGAL
     Dosage: 5 MG/KG, UID/QD, UNK
  2. PROMETHAZINE [Concomitant]
  3. DIAZEPAM [Concomitant]
  4. CELECOXIB (CELECOXIB) [Concomitant]
  5. MIRTAZAPINE [Concomitant]
  6. ESOMEPRAZOLE (ESOMEPRAZOLE) [Concomitant]

REACTIONS (4)
  - BLASTOMYCOSIS [None]
  - DEAFNESS NEUROSENSORY [None]
  - DEAFNESS UNILATERAL [None]
  - MENINGITIS [None]
